FAERS Safety Report 25146972 (Version 2)
Quarter: 2025Q2

REPORT INFORMATION
  Report Type: Report from Study
  Country: DE (occurrence: DE)
  Receive Date: 20250401
  Receipt Date: 20250403
  Transmission Date: 20250717
  Serious: No
  Sender: UCB
  Company Number: DE-UCBSA-2025016714

PATIENT
  Age: 66 Year
  Sex: Female
  Weight: 70 kg

DRUGS (13)
  1. BIMEKIZUMAB [Suspect]
     Active Substance: BIMEKIZUMAB
     Indication: Hidradenitis
     Dosage: 320 MILLIGRAM, EV 2 WEEKS(QOW)
     Route: 058
     Dates: start: 20250218
  2. PANTOPRAZOLE [Concomitant]
     Active Substance: PANTOPRAZOLE
     Indication: Gastrooesophageal reflux disease
     Dosage: 20 MILLIGRAM, 2X/DAY (BID)
     Dates: start: 2024
  3. TRESIBA [Concomitant]
     Active Substance: INSULIN DEGLUDEC
     Indication: Type 2 diabetes mellitus
     Dates: start: 2004
  4. DAPAGLIFLOZIN [Concomitant]
     Active Substance: DAPAGLIFLOZIN
     Indication: Type 2 diabetes mellitus
     Dosage: 5 MILLIGRAM, 2X/DAY (BID)
     Dates: start: 2020
  5. ASPIRIN [Concomitant]
     Active Substance: ASPIRIN
     Indication: Peripheral arterial occlusive disease
     Dosage: 100 MILLIGRAM, ONCE DAILY (QD)
     Dates: start: 2023
  6. RAMIPRIL [Concomitant]
     Active Substance: RAMIPRIL
     Indication: Hypertension
     Dosage: 2.5 MILLIGRAM, ONCE DAILY (QD)
     Dates: start: 2004
  7. GABAPENTIN [Concomitant]
     Active Substance: GABAPENTIN
     Indication: Neurodermatitis
     Dates: start: 20250206
  8. CETIRIZINE HCL [Concomitant]
     Active Substance: CETIRIZINE HYDROCHLORIDE
     Indication: Neurodermatitis
     Dosage: 10 MILLIGRAM, ONCE DAILY (QD)
     Dates: start: 20250206
  9. METAMIZOL [Concomitant]
     Active Substance: METAMIZOLE SODIUM
     Indication: Pain
     Dosage: 500 MILLIGRAM, 4X/DAY (QID)
     Dates: start: 2021
  10. ADALIMUMAB [Concomitant]
     Active Substance: ADALIMUMAB
     Indication: Hidradenitis
     Dosage: 40 MILLIGRAM, WEEKLY (QW)
     Dates: start: 2018, end: 20250203
  11. NYSTADERM [Concomitant]
     Indication: Oral candidiasis
     Dates: start: 202502
  12. INFECTOSOOR [Concomitant]
     Indication: Stomatitis
     Dates: start: 202502
  13. CHLORHEXAMED FORTE [Concomitant]
     Indication: Stomatitis
     Dates: start: 202502

REACTIONS (3)
  - Muscle strain [Not Recovered/Not Resolved]
  - Hypoglycaemia [Not Recovered/Not Resolved]
  - Dysphagia [Not Recovered/Not Resolved]

NARRATIVE: CASE EVENT DATE: 20250312
